APPROVED DRUG PRODUCT: HYDROCODONE BITARTRATE AND ACETAMINOPHEN
Active Ingredient: ACETAMINOPHEN; HYDROCODONE BITARTRATE
Strength: 660MG;10MG
Dosage Form/Route: TABLET;ORAL
Application: A040495 | Product #001
Applicant: WATSON LABORATORIES INC FLORIDA
Approved: May 28, 2003 | RLD: No | RS: No | Type: DISCN